FAERS Safety Report 8285774-4 (Version None)
Quarter: 2012Q2

REPORT INFORMATION
  Report Type: 
  Country: None (occurrence: None)
  Receive Date: 20120413
  Receipt Date: 20120405
  Transmission Date: 20120825
  Serious: Yes (Death)
  Sender: FDA-Public Use
  Company Number: ES-ELI_LILLY_AND_COMPANY-ES201204002429

PATIENT
  Sex: Male
  Weight: 54 kg

DRUGS (4)
  1. OMEPRAZOLE [Concomitant]
     Indication: PROPHYLAXIS
     Dosage: 20 MG, QD
     Route: 048
  2. ASPIRIN [Concomitant]
     Indication: CARDIOVASCULAR DISORDER
     Dosage: 1 DF, QD
     Route: 048
  3. EMPORTAL [Concomitant]
     Indication: CONSTIPATION
     Dosage: 1 DF, QD
     Route: 048
  4. FORTEO [Suspect]
     Indication: OSTEOPOROSIS
     Dosage: 20 UG, QD
     Route: 058
     Dates: start: 20101012

REACTIONS (1)
  - DEATH [None]
